FAERS Safety Report 6327891-1 (Version None)
Quarter: 2009Q3

REPORT INFORMATION
  Report Type: 
  Country: None (occurrence: None)
  Receive Date: 20090825
  Receipt Date: 20090722
  Transmission Date: 20100115
  Serious: No
  Sender: FDA-Public Use
  Company Number: US-ABBOTT-09P-163-0586923-00

PATIENT
  Sex: Female
  Weight: 57.204 kg

DRUGS (17)
  1. SYNTHROID [Suspect]
     Indication: HYPOTHYROIDISM
     Dosage: ONE MCG DAILY
     Dates: start: 20040101
  2. KLONOPIN [Concomitant]
     Indication: TREMOR
  3. PROTONIX [Concomitant]
     Indication: GASTRIC DISORDER
  4. GLUCOSAMINE CHONDROITIN [Concomitant]
     Indication: DRUG USE FOR UNKNOWN INDICATION
  5. CITRACAL [Concomitant]
     Indication: ROUTINE HEALTH MAINTENANCE
  6. VITAMIN B COMPLEX CAP [Concomitant]
     Indication: ROUTINE HEALTH MAINTENANCE
  7. FLOVENT [Concomitant]
     Indication: ASTHMA
  8. FLONASE [Concomitant]
     Indication: HYPERSENSITIVITY
  9. SINGULAIR [Concomitant]
     Indication: HYPERSENSITIVITY
  10. EXCEDRIN [Concomitant]
     Indication: PAIN
  11. NEURONTIN [Concomitant]
     Indication: PAIN IN EXTREMITY
  12. CITROLOPIM [Concomitant]
     Indication: DEPRESSION
  13. NORVASC [Concomitant]
     Indication: HYPERTENSION
  14. HYDROCHLOROTHIAZIDE [Concomitant]
     Indication: HYPERTENSION
  15. CARDIO TAB STERO [Concomitant]
     Indication: BLOOD CHOLESTEROL INCREASED
  16. OMEGA THREE [Concomitant]
     Indication: ROUTINE HEALTH MAINTENANCE
  17. CARDIO TEA [Concomitant]
     Indication: ROUTINE HEALTH MAINTENANCE

REACTIONS (1)
  - POOR QUALITY DRUG ADMINISTERED [None]
